FAERS Safety Report 5579022-3 (Version None)
Quarter: 2007Q4

REPORT INFORMATION
  Report Type: 
  Country: None (occurrence: None)
  Receive Date: 20071221
  Receipt Date: 20071213
  Transmission Date: 20080405
  Serious: Yes (Other)
  Sender: FDA-Public Use
  Company Number: CHPA2007US13639

PATIENT
  Age: 11 Year
  Sex: Female

DRUGS (1)
  1. TRIAMINIC INFANT DECONGESTANT COUGH (NCH)  (DEXTROMETHORPHAN HYDROBROM [Suspect]
     Dosage: ORAL
     Route: 048

REACTIONS (3)
  - BLOOD COUNT ABNORMAL [None]
  - DEPRESSED LEVEL OF CONSCIOUSNESS [None]
  - SOMNOLENCE [None]
